FAERS Safety Report 7808465-X (Version None)
Quarter: 2011Q4

REPORT INFORMATION
  Report Type: 
  Country: None (occurrence: None)
  Receive Date: 20111012
  Receipt Date: 20110927
  Transmission Date: 20120403
  Serious: Yes (Hospitalization)
  Sender: FDA-Public Use
  Company Number: US-BAYER-2011-039209

PATIENT
  Age: 42 Year
  Sex: Female
  Weight: 79 kg

DRUGS (11)
  1. EXCEDRIN (MIGRAINE) [Concomitant]
     Indication: HEADACHE
     Route: 048
  2. YAZ [Suspect]
     Indication: PREMENSTRUAL SYNDROME
     Dosage: UNK
     Dates: start: 20090501, end: 20090901
  3. CALCIUM CARBONATE [Concomitant]
     Route: 048
  4. ANTIOXIDANTS [Concomitant]
     Route: 048
  5. ROPINIROLE [Concomitant]
  6. MULTI-VITAMINS [Concomitant]
     Route: 048
  7. CEPHALEXIN [Concomitant]
  8. KEFLEX [Concomitant]
     Indication: INFECTION
     Route: 048
  9. IBUPROFEN [Concomitant]
     Indication: PHLEBITIS
     Route: 048
  10. YAZ [Suspect]
     Indication: MENSTRUATION IRREGULAR
  11. PREDNISONE [Concomitant]
     Route: 048

REACTIONS (5)
  - INJURY [None]
  - OEDEMA PERIPHERAL [None]
  - THROMBOSIS [None]
  - DEEP VEIN THROMBOSIS [None]
  - PAIN IN EXTREMITY [None]
